FAERS Safety Report 22537175 (Version 2)
Quarter: 2023Q2

REPORT INFORMATION
  Report Type: Report from Study
  Country: IT (occurrence: IT)
  Receive Date: 20230608
  Receipt Date: 20230621
  Transmission Date: 20230721
  Serious: Yes (Hospitalization, Other)
  Sender: FDA-Public Use
  Company Number: IT-JNJFOC-20230569660

PATIENT
  Age: 64 Year
  Sex: Female

DRUGS (12)
  1. DEXAMETHASONE SODIUM PHOSPHATE [Suspect]
     Active Substance: DEXAMETHASONE SODIUM PHOSPHATE
     Indication: Plasma cell myeloma
     Dosage: 20 MG
     Route: 065
     Dates: start: 20211115, end: 20211118
  2. DOXORUBICIN HYDROCHLORIDE [Suspect]
     Active Substance: DOXORUBICIN HYDROCHLORIDE
     Indication: Plasma cell myeloma
     Dosage: 35 MG
     Route: 065
     Dates: start: 20211118, end: 20211118
  3. VELCADE [Suspect]
     Active Substance: BORTEZOMIB
     Indication: Plasma cell myeloma
     Dosage: 2.1 MG
     Route: 065
     Dates: start: 20211115, end: 20211118
  4. VALACYCLOVIR [Concomitant]
     Active Substance: VALACYCLOVIR HYDROCHLORIDE
     Indication: Prophylaxis
     Route: 065
  5. NYSTATIN/CHLORHEXIDINE HYDROCHLORIDE [Concomitant]
     Indication: Prophylaxis
     Route: 065
     Dates: end: 20211210
  6. ALLOPURINOL [Concomitant]
     Active Substance: ALLOPURINOL
     Indication: Prophylaxis
     Route: 065
  7. SULFAMETHOXAZOLE\TRIMETHOPRIM [Concomitant]
     Active Substance: SULFAMETHOXAZOLE\TRIMETHOPRIM
     Indication: Prophylaxis
     Route: 065
  8. PANTOPRAZOLE [Concomitant]
     Active Substance: PANTOPRAZOLE
     Indication: Prophylaxis
     Route: 065
  9. ERYTHROPOIETIN [Concomitant]
     Active Substance: ERYTHROPOIETIN
     Indication: Anaemia
     Route: 065
  10. FENTANYL [Concomitant]
     Active Substance: FENTANYL
     Indication: Pain
     Route: 065
     Dates: end: 20211210
  11. CALCIPARINE [Concomitant]
     Active Substance: HEPARIN CALCIUM
     Indication: Prophylaxis
     Route: 065
  12. CHOLECALCIFEROL [Concomitant]
     Active Substance: CHOLECALCIFEROL
     Indication: Prophylaxis
     Route: 065
     Dates: end: 20211210

REACTIONS (1)
  - Acute kidney injury [Recovered/Resolved with Sequelae]

NARRATIVE: CASE EVENT DATE: 20211118
